FAERS Safety Report 7693270-8 (Version None)
Quarter: 2011Q3

REPORT INFORMATION
  Report Type: 
  Country: None (occurrence: None)
  Receive Date: 20110819
  Receipt Date: 20110805
  Transmission Date: 20111222
  Serious: Yes (Other)
  Sender: FDA-Public Use
  Company Number: PHHY2011IE72069

PATIENT
  Sex: Female

DRUGS (17)
  1. FUROSEMIDE [Concomitant]
     Dosage: 1 DF, QD
  2. KEPPRA [Concomitant]
     Dosage: 500 MG, 1 TAB DAILY
  3. COMBIVENT [Concomitant]
     Dosage: 2.5ML NEB SOLN 1 NEBULE QDS NEBULES
  4. DIGOXIN [Concomitant]
     Dosage: 1 DF, QD
  5. LACTULOSE [Concomitant]
     Dosage: 3.5 G/5ML 10 ML BD PRN
  6. CALCIUM CARBONATE [Concomitant]
     Dosage: 1 DF, BID
  7. OMEPRAZOLE [Concomitant]
     Dosage: 1 DF, QD
  8. BISOPROLOL FUMARATE [Concomitant]
     Dosage: 1 DF, BID
  9. CARDURA [Concomitant]
     Dosage: 1 DF, BID
  10. NITROGLYCERIN [Concomitant]
     Dosage: UNK UKN, PRN
     Dates: start: 20110725
  11. RASILEZ [Suspect]
     Dosage: 150 MG, QD
  12. MOVIPREP [Concomitant]
     Dosage: 13.8G PDR FOR ORAL SOLN SACHETS 1 SACHET BD
  13. GAVISCON [Concomitant]
     Dosage: 5ML DAILY X 1 BOTTLE PRN
  14. MOTILIUM [Concomitant]
     Dosage: 2 DF, TID
  15. KEPPRA [Concomitant]
     Dosage: 250 MG, 1 TAB DAILY
  16. ASPIRIN [Concomitant]
     Dosage: 1 DF, QD
  17. BONIVA [Concomitant]
     Dosage: 1 DF, QMO

REACTIONS (1)
  - TRANSIENT ISCHAEMIC ATTACK [None]
